FAERS Safety Report 5700524-0 (Version None)
Quarter: 2008Q2

REPORT INFORMATION
  Report Type: 
  Country: None (occurrence: None)
  Receive Date: 20080410
  Receipt Date: 20080401
  Transmission Date: 20081010
  Serious: Yes (Other)
  Sender: FDA-Public Use
  Company Number: CL-JNJFOC-20080400115

PATIENT
  Age: 65 Year
  Sex: Male

DRUGS (2)
  1. TAVANIC [Suspect]
     Indication: OTITIS MEDIA ACUTE
     Route: 048
  2. LORATADINE [Concomitant]
     Indication: OTITIS MEDIA ACUTE
     Route: 048

REACTIONS (1)
  - HAEMATOCRIT DECREASED [None]
